FAERS Safety Report 8975804 (Version 1)
Quarter: 2012Q4

REPORT INFORMATION
  Report Type: 
  Country: US (occurrence: US)
  Receive Date: 20121219
  Receipt Date: 20121219
  Transmission Date: 20130627
  Serious: Yes (Other)
  Sender: FDA-Public Use
  Company Number: PHEH2012US024765

PATIENT
  Sex: Female

DRUGS (1)
  1. SANDOSTATIN [Suspect]
     Route: 058

REACTIONS (14)
  - Cognitive disorder [Unknown]
  - Blood pressure fluctuation [Unknown]
  - Speech disorder [Unknown]
  - Weight increased [Unknown]
  - Hypoaesthesia [Unknown]
  - Drug intolerance [Unknown]
  - Fatigue [Unknown]
  - Anxiety [Unknown]
  - Insomnia [Unknown]
  - Fluid retention [Unknown]
  - Abdominal distension [Unknown]
  - Abdominal pain [Unknown]
  - Headache [Unknown]
  - Nausea [Unknown]
